FAERS Safety Report 9592012 (Version 1)
Quarter: 2013Q4

REPORT INFORMATION
  Report Type: Spontaneous
  Country: US (occurrence: US)
  Receive Date: 20131004
  Receipt Date: 20131004
  Transmission Date: 20140711
  Serious: Yes (Hospitalization)
  Sender: FDA-Public Use
  Company Number: US-AMGEN-USASP2013069318

PATIENT
  Age: 53 Year
  Sex: Female
  Weight: 88.44 kg

DRUGS (17)
  1. ENBREL [Suspect]
     Indication: PRODUCT USED FOR UNKNOWN INDICATION
     Dosage: 50 MG, QWK
     Route: 058
  2. OXYCODONE [Concomitant]
     Dosage: 10 MG, UNK
  3. LEVOTHROID [Concomitant]
     Dosage: 112 MUG, UNK
  4. MIRAPEX [Concomitant]
     Dosage: 0.75 MG, UNK
  5. NEURONTIN [Concomitant]
     Dosage: 600 MG, UNK
  6. PROTONIX [Concomitant]
     Dosage: 20 MG, UNK
  7. ALLEGRA D 24 HOUR [Concomitant]
     Dosage: UNK
  8. AMBIEN [Concomitant]
     Dosage: 5 MG, UNK
  9. ALBUTEROL                          /00139501/ [Concomitant]
     Dosage: 90 MUG, UNK
  10. TRAMADOL HCL [Concomitant]
     Dosage: 50 MG, UNK
  11. FLINTSTONES COMPLETE               /02265901/ [Concomitant]
     Dosage: UNK
  12. FISH OIL [Concomitant]
     Dosage: UNK
  13. CALCIUM [Concomitant]
     Dosage: 500 UNK, UNK
  14. VITAMIN C                          /00008001/ [Concomitant]
     Dosage: 500 MG, UNK
  15. IRON [Concomitant]
     Dosage: 25 MG, UNK
  16. KENALOG                            /00031902/ [Concomitant]
     Dosage: 10 MG, UNK, 10MG/ML
  17. TORADOL [Concomitant]
     Dosage: 10 MG, UNK
     Route: 048

REACTIONS (6)
  - Gastrointestinal infection [Unknown]
  - Fatigue [Unknown]
  - Visual impairment [Unknown]
  - Arthralgia [Unknown]
  - Gait disturbance [Unknown]
  - Sinusitis [Unknown]
